FAERS Safety Report 8173342-4 (Version None)
Quarter: 2012Q1

REPORT INFORMATION
  Report Type: 
  Country: None (occurrence: None)
  Receive Date: 20120229
  Receipt Date: 20120220
  Transmission Date: 20120608
  Serious: Yes (Other)
  Sender: FDA-Public Use
  Company Number: US-BAYER-2012-017465

PATIENT
  Age: 71 Year
  Sex: Female
  Weight: 136 kg

DRUGS (12)
  1. AMLODIPINE [Concomitant]
  2. MULTIVITAMINS, OTHER COMBINATIONS [Concomitant]
  3. GLUCOSAMINE [Concomitant]
  4. VITAMIN A [Concomitant]
  5. ALEVE (CAPLET) [Suspect]
     Indication: ANALGESIC THERAPY
     Dosage: 2 DF, QD
     Route: 048
  6. ONE-A-DAY ESSENTIAL [Concomitant]
  7. COQ10 [Concomitant]
  8. ALEVE (CAPLET) [Suspect]
     Indication: ARTHRALGIA
  9. LEVOTHYROXINE SODIUM [Concomitant]
  10. TRIAMTERENE AND HYDROCHLOROTHIAZIDE [Concomitant]
  11. METOPROLOL SUCCINATE [Concomitant]
  12. FISH OIL [Concomitant]

REACTIONS (4)
  - BLOOD URINE PRESENT [None]
  - EPISTAXIS [None]
  - ERYTHEMA [None]
  - HAEMATOCHEZIA [None]
